FAERS Safety Report 5194614-1 (Version None)
Quarter: 2006Q4

REPORT INFORMATION
  Report Type: 
  Country: None (occurrence: None)
  Receive Date: 20061229
  Receipt Date: 20061220
  Transmission Date: 20070319
  Serious: Yes (Other)
  Sender: FDA-Public Use
  Company Number: FR-JNJFOC-20061101613

PATIENT
  Age: 73 Year
  Sex: Female

DRUGS (1)
  1. OFLOCET [Suspect]
     Indication: URINARY TRACT INFECTION
     Route: 048
     Dates: start: 20061024, end: 20061028

REACTIONS (1)
  - HEPATITIS A [None]
